FAERS Safety Report 5226386-6 (Version None)
Quarter: 2006Q4

REPORT INFORMATION
  Report Type: 
  Country: None (occurrence: None)
  Receive Date: 20061201
  Receipt Date: 20061023
  Transmission Date: 20070319
  Serious: No
  Sender: FDA-Public Use
  Company Number: US200610003967

PATIENT
  Age: 62 Year
  Sex: Female

DRUGS (6)
  1. CYMBALTA [Suspect]
     Indication: FIBROMYALGIA
     Dosage: 60 MG
     Dates: start: 20060101
  2. ATENOLOL [Concomitant]
  3. TOPROL-XL [Concomitant]
  4. HYDROCHLOROTHIAZIDE [Concomitant]
  5. OMEPRAZOLE [Concomitant]
  6. DARVOCET-N 100 [Concomitant]

REACTIONS (2)
  - ABNORMAL DREAMS [None]
  - HALLUCINATIONS, MIXED [None]
